FAERS Safety Report 20512521 (Version 2)
Quarter: 2022Q2

REPORT INFORMATION
  Report Type: Spontaneous
  Country: CA (occurrence: CA)
  Receive Date: 20220224
  Receipt Date: 20220427
  Transmission Date: 20220720
  Serious: Yes (Hospitalization, Other)
  Sender: FDA-Public Use
  Company Number: CA-SPECGX-T202200188

PATIENT
  Sex: Female
  Weight: 1 kg

DRUGS (1)
  1. METHADOSE [Suspect]
     Active Substance: METHADONE HYDROCHLORIDE
     Indication: Foetal exposure during pregnancy
     Dosage: 100 MILLIGRAM/ DAY
     Route: 064

REACTIONS (3)
  - Meconium ileus [Unknown]
  - Premature baby [Unknown]
  - Foetal exposure during pregnancy [Unknown]
